FAERS Safety Report 14281144 (Version 2)
Quarter: 2017Q4

REPORT INFORMATION
  Report Type: Spontaneous
  Country: US (occurrence: US)
  Receive Date: 20171213
  Receipt Date: 20171222
  Transmission Date: 20180321
  Serious: Yes (Other)
  Sender: FDA-Public Use
  Company Number: US-BIOGEN-2017BI00495478

PATIENT
  Age: 46 Year
  Sex: Female

DRUGS (2)
  1. PLEGRIDY [Suspect]
     Active Substance: PEGINTERFERON BETA-1A
     Route: 065
     Dates: start: 20170522, end: 20171217
  2. PLEGRIDY [Suspect]
     Active Substance: PEGINTERFERON BETA-1A
     Indication: MULTIPLE SCLEROSIS
     Route: 058
     Dates: start: 201705

REACTIONS (3)
  - Vaginal haemorrhage [Unknown]
  - Rectal haemorrhage [Not Recovered/Not Resolved]
  - Urethral haemorrhage [Unknown]

NARRATIVE: CASE EVENT DATE: 201708
